FAERS Safety Report 10662011 (Version 3)
Quarter: 2015Q3

REPORT INFORMATION
  Report Type: Report from Study
  Country: US (occurrence: US)
  Receive Date: 20141218
  Receipt Date: 20150707
  Transmission Date: 20151125
  Serious: Yes (Other)
  Sender: FDA-Public Use
  Company Number: PHEH2014US024282

PATIENT
  Sex: Male
  Weight: 99.77 kg

DRUGS (5)
  1. BETASERON [Concomitant]
     Active Substance: INTERFERON BETA-1B
     Indication: PRODUCT USED FOR UNKNOWN INDICATION
     Route: 065
  2. LYRICA [Concomitant]
     Active Substance: PREGABALIN
     Indication: MULTIPLE SCLEROSIS
     Route: 065
  3. OXYCODONE AND ACETAMINOPHEN [Concomitant]
     Active Substance: ACETAMINOPHEN\OXYCODONE\OXYCODONE HYDROCHLORIDE
     Indication: PRODUCT USED FOR UNKNOWN INDICATION
     Route: 065
  4. GILENYA [Suspect]
     Active Substance: FINGOLIMOD HYDROCHLORIDE
     Indication: MULTIPLE SCLEROSIS
     Dosage: 0.5 MG, QD
     Route: 048
     Dates: start: 20120927, end: 201402
  5. AMITRIPTYLINE [Concomitant]
     Active Substance: AMITRIPTYLINE
     Indication: MULTIPLE SCLEROSIS
     Route: 065

REACTIONS (30)
  - Myoclonus [Unknown]
  - JC virus test positive [Unknown]
  - Intervertebral disc degeneration [Unknown]
  - Facial pain [Not Recovered/Not Resolved]
  - Oral pain [Not Recovered/Not Resolved]
  - Asthenia [Unknown]
  - Facial asymmetry [Unknown]
  - Affective disorder [Unknown]
  - Fall [Unknown]
  - Visual acuity reduced [Unknown]
  - Ocular hyperaemia [Unknown]
  - Toothache [Unknown]
  - Fatigue [Unknown]
  - Eye pain [Unknown]
  - Anxiety [Unknown]
  - Somnolence [Unknown]
  - Eye swelling [Unknown]
  - Diarrhoea [Unknown]
  - Multiple sclerosis [Unknown]
  - Hoffmann^s sign [Unknown]
  - Trigeminal neuralgia [Not Recovered/Not Resolved]
  - Tooth abscess [Unknown]
  - Extensor plantar response [Unknown]
  - Coordination abnormal [Unknown]
  - Dry skin [Unknown]
  - Central nervous system lesion [Unknown]
  - Gait disturbance [Unknown]
  - Muscular weakness [Unknown]
  - Nystagmus [Unknown]
  - Decubitus ulcer [Unknown]
